FAERS Safety Report 11166255 (Version 1)
Quarter: 2015Q2

REPORT INFORMATION
  Report Type: Spontaneous
  Country: ES (occurrence: ES)
  Receive Date: 20150605
  Receipt Date: 20150605
  Transmission Date: 20150821
  Serious: Yes (Hospitalization, Other)
  Sender: FDA-Public Use
  Company Number: PHHY2015ES065633

PATIENT
  Age: 22 Year
  Sex: Male

DRUGS (9)
  1. IBUPROFEN. [Suspect]
     Active Substance: IBUPROFEN
     Indication: HEADACHE
     Dosage: 1200 MG, UNK
     Route: 065
  2. ALGIDOL                            /07132001/ [Concomitant]
     Indication: INFLUENZA
     Route: 065
  3. ACETAMINOPHEN. [Concomitant]
     Active Substance: ACETAMINOPHEN
     Indication: HEADACHE
     Dosage: 500 MG, UNK
     Route: 048
  4. IBUPROFEN. [Suspect]
     Active Substance: IBUPROFEN
     Indication: ARTHRALGIA
  5. ACETAMINOPHEN. [Concomitant]
     Active Substance: ACETAMINOPHEN
     Indication: ARTHRALGIA
  6. ACETAMINOPHEN. [Concomitant]
     Active Substance: ACETAMINOPHEN
     Indication: MYALGIA
  7. ACETAMINOPHEN. [Concomitant]
     Active Substance: ACETAMINOPHEN
     Indication: HYPERTHERMIA
  8. IBUPROFEN. [Suspect]
     Active Substance: IBUPROFEN
     Indication: MYALGIA
  9. IBUPROFEN. [Suspect]
     Active Substance: IBUPROFEN
     Indication: HYPERTHERMIA

REACTIONS (18)
  - Pyrexia [Unknown]
  - Necrosis [Unknown]
  - Hepatomegaly [Recovering/Resolving]
  - Hypotension [Recovering/Resolving]
  - Metabolic acidosis [Recovering/Resolving]
  - Coagulopathy [Recovering/Resolving]
  - Eosinophilia [Recovering/Resolving]
  - Influenza [Recovering/Resolving]
  - Pleural effusion [Recovering/Resolving]
  - Drug reaction with eosinophilia and systemic symptoms [Recovering/Resolving]
  - Hypersensitivity [Unknown]
  - Phlebitis [Unknown]
  - Inflammation [Unknown]
  - Hepatic encephalopathy [Recovering/Resolving]
  - Thrombocytopenia [Recovering/Resolving]
  - Respiratory failure [Recovering/Resolving]
  - Abdominal pain upper [Recovering/Resolving]
  - Rash pruritic [Recovering/Resolving]
